FAERS Safety Report 6545859-7 (Version None)
Quarter: 2010Q1

REPORT INFORMATION
  Report Type: 
  Country: None (occurrence: None)
  Receive Date: 20100121
  Receipt Date: 20090820
  Transmission Date: 20100710
  Serious: No
  Sender: FDA-Public Use
  Company Number: US-ALLERGAN-0910566US

PATIENT
  Age: 15 Year
  Sex: Female
  Weight: 52.154 kg

DRUGS (5)
  1. TAZORAC [Suspect]
     Indication: ACNE
     Dosage: UNK, UNKNOWN
     Route: 061
     Dates: start: 20090719
  2. TAZORAC [Suspect]
     Dosage: EVERY THIRD NIGHT
     Route: 061
  3. BENZOYL PEROXIDE [Concomitant]
     Indication: ACNE
     Dosage: UNK
     Route: 061
     Dates: start: 20090719
  4. KLARON [Concomitant]
     Indication: ACNE
     Dosage: UNK
     Route: 061
     Dates: start: 20090719
  5. MOISTURIZER [Concomitant]

REACTIONS (9)
  - DISCOMFORT [None]
  - DRY SKIN [None]
  - ERYTHEMA [None]
  - HYPERAESTHESIA [None]
  - PAIN [None]
  - SCAB [None]
  - SKIN BURNING SENSATION [None]
  - SKIN EXFOLIATION [None]
  - SKIN IRRITATION [None]
